FAERS Safety Report 10047184 (Version 2)
Quarter: 2014Q3

REPORT INFORMATION
  Report Type: Spontaneous
  Country: IT (occurrence: None)
  Receive Date: 20140327
  Receipt Date: 20140730
  Transmission Date: 20150326
  Serious: Yes (Other)
  Sender: FDA-Public Use
  Company Number: AUR-APL-2014-03855

PATIENT
  Age: 73 Year
  Sex: Male

DRUGS (3)
  1. SERTRALINE [Suspect]
     Active Substance: SERTRALINE HYDROCHLORIDE
     Indication: BIPOLAR DISORDER
     Dosage: 1 D
     Route: 048
     Dates: start: 20130101, end: 20140123
  2. DELORAZEPAM (DELORAZEPAM) [Suspect]
     Active Substance: DELORAZEPAM
     Indication: BIPOLAR DISORDER
     Dosage: TOTAL
     Route: 048
     Dates: start: 20130101, end: 20140123
  3. NOZINAN (LEVOMEPROMAZINE) FILM-COATED TABLET, 100MG [Suspect]
     Active Substance: LEVOMEPROMAZINE
     Indication: BIPOLAR DISORDER
     Dosage: 1 D
     Route: 048
     Dates: start: 20130101, end: 20140123

REACTIONS (3)
  - Bipolar disorder [None]
  - Off label use [None]
  - Movement disorder [None]

NARRATIVE: CASE EVENT DATE: 20130101
